FAERS Safety Report 22304814 (Version 1)
Quarter: 2023Q2

REPORT INFORMATION
  Report Type: Spontaneous
  Country: US (occurrence: None)
  Receive Date: 20230509
  Receipt Date: 20230509
  Transmission Date: 20230722
  Serious: Yes (Other)
  Sender: FDA-Public Use
  Company Number: None

PATIENT
  Age: 66 Year
  Sex: Female
  Weight: 63 kg

DRUGS (1)
  1. RECLAST [Suspect]
     Active Substance: ZOLEDRONIC ACID
     Route: 042
     Dates: start: 20230509, end: 20230509

REACTIONS (4)
  - Blood pressure increased [None]
  - Blood pressure systolic increased [None]
  - Paraesthesia oral [None]
  - Dizziness [None]

NARRATIVE: CASE EVENT DATE: 20230509
